FAERS Safety Report 23697164 (Version 2)
Quarter: 2025Q3

REPORT INFORMATION
  Report Type: Spontaneous
  Country: EU (occurrence: EU)
  Receive Date: 20240402
  Receipt Date: 20250725
  Transmission Date: 20251020
  Serious: Yes (Other)
  Sender: MYLAN
  Company Number: EU-002147023-NVSC2020CZ094013

PATIENT
  Age: 41 Year
  Sex: Male
  Weight: 51 kg

DRUGS (12)
  1. LEVETIRACETAM [Suspect]
     Active Substance: LEVETIRACETAM
     Indication: Oedema
  2. LEVETIRACETAM [Suspect]
     Active Substance: LEVETIRACETAM
     Indication: Epilepsy
     Route: 065
  3. LEVETIRACETAM [Suspect]
     Active Substance: LEVETIRACETAM
     Route: 065
  4. LEVETIRACETAM [Suspect]
     Active Substance: LEVETIRACETAM
  5. DEXAMETHASONE [Suspect]
     Active Substance: DEXAMETHASONE
     Indication: Oedema
  6. DEXAMETHASONE [Suspect]
     Active Substance: DEXAMETHASONE
     Route: 065
  7. DEXAMETHASONE [Suspect]
     Active Substance: DEXAMETHASONE
     Route: 065
  8. DEXAMETHASONE [Suspect]
     Active Substance: DEXAMETHASONE
  9. VALPROATE [Suspect]
     Active Substance: VALPROIC ACID
     Indication: Oedema
  10. VALPROATE [Suspect]
     Active Substance: VALPROIC ACID
     Indication: Epilepsy
     Route: 065
  11. VALPROATE [Suspect]
     Active Substance: VALPROIC ACID
     Route: 065
  12. VALPROATE [Suspect]
     Active Substance: VALPROIC ACID

REACTIONS (4)
  - Epilepsy [Unknown]
  - Tonsil cancer [Unknown]
  - Malignant neoplasm progression [Unknown]
  - Haematotoxicity [Unknown]
